FAERS Safety Report 25021645 (Version 1)
Quarter: 2025Q1

REPORT INFORMATION
  Report Type: Spontaneous
  Country: GB (occurrence: GB)
  Receive Date: 20250228
  Receipt Date: 20250228
  Transmission Date: 20250408
  Serious: Yes (Other)
  Sender: ABBVIE
  Company Number: None

PATIENT
  Age: 39 Year
  Sex: Female
  Weight: 55 kg

DRUGS (2)
  1. MESALAMINE [Suspect]
     Active Substance: MESALAMINE
     Indication: Product used for unknown indication
     Route: 065
     Dates: start: 20241222
  2. MESALAMINE [Suspect]
     Active Substance: MESALAMINE
     Indication: Colitis
     Dosage: 4 TABLETS A DAY
     Route: 065
     Dates: start: 20241222

REACTIONS (3)
  - Chromaturia [Not Recovered/Not Resolved]
  - Cafe au lait spots [Not Recovered/Not Resolved]
  - Skin discolouration [Not Recovered/Not Resolved]
